FAERS Safety Report 4896404-3 (Version None)
Quarter: 2006Q1

REPORT INFORMATION
  Report Type: 
  Country: None (occurrence: None)
  Receive Date: 20060126
  Receipt Date: 20060117
  Transmission Date: 20060701
  Serious: Yes (Hospitalization)
  Sender: FDA-Public Use
  Company Number: 2005BI020902

PATIENT
  Age: 68 Year
  Sex: Male

DRUGS (12)
  1. AVONEX [Suspect]
     Indication: MULTIPLE SCLEROSIS
     Dosage: 30 UG;QW; IM
     Route: 030
     Dates: start: 20001108, end: 20051028
  2. VIT D [Concomitant]
  3. ASPIRIN [Concomitant]
  4. TYLENOL [Concomitant]
  5. MULTIVIT [Concomitant]
  6. VIT E [Concomitant]
  7. VIT C [Concomitant]
  8. FISH OIL [Concomitant]
  9. GREEN TEA [Concomitant]
  10. VIT B12 [Concomitant]
  11. NIACIN [Concomitant]
  12. SAW PALMETTO [Concomitant]

REACTIONS (7)
  - BENIGN PROSTATIC HYPERPLASIA [None]
  - CHILLS [None]
  - DYSURIA [None]
  - EXTRUSION OF DEVICE [None]
  - HEADACHE [None]
  - MUSCULOSKELETAL STIFFNESS [None]
  - PYREXIA [None]
